FAERS Safety Report 8576812-X (Version None)
Quarter: 2012Q3

REPORT INFORMATION
  Report Type: 
  Country: None (occurrence: None)
  Receive Date: 20120807
  Receipt Date: 20120803
  Transmission Date: 20120928
  Serious: Yes (Hospitalization)
  Sender: FDA-Public Use
  Company Number: US-AMGEN-US291169

PATIENT
  Age: 78 Year
  Sex: Male

DRUGS (8)
  1. CINACALCET HYDROCHLORIDE [Suspect]
     Indication: HYPERPARATHYROIDISM SECONDARY
     Dosage: UNK UNK, QD
     Route: 048
     Dates: start: 20070706, end: 20080624
  2. ASPIRIN [Concomitant]
  3. FUROSEMIDE [Concomitant]
  4. HEPARIN [Concomitant]
  5. NIFEDIPINE [Concomitant]
  6. CALCIUM [Concomitant]
  7. FOLIC ACID [Concomitant]
     Dosage: 1 MG, QD
  8. LABETALOL HCL [Concomitant]

REACTIONS (1)
  - SYNCOPE [None]
